FAERS Safety Report 19765495 (Version 1)
Quarter: 2021Q3

REPORT INFORMATION
  Report Type: Spontaneous
  Country: CN (occurrence: CN)
  Receive Date: 20210831
  Receipt Date: 20210831
  Transmission Date: 20211014
  Serious: Yes (Disabling, Other)
  Sender: FDA-Public Use
  Company Number: CN-009507513-2108CHN006988

PATIENT
  Age: 62 Year
  Sex: Male

DRUGS (3)
  1. TIENAM [Suspect]
     Active Substance: CILASTATIN SODIUM\IMIPENEM
     Dosage: 0.5G Q6H
     Route: 041
     Dates: start: 20210816, end: 20210819
  2. CHLORAMPHENICOL [Concomitant]
     Active Substance: CHLORAMPHENICOL
     Indication: INFECTION
     Dosage: 1 G, BID
     Route: 041
     Dates: start: 20210810, end: 20210816
  3. TIENAM [Suspect]
     Active Substance: CILASTATIN SODIUM\IMIPENEM
     Indication: INFECTION
     Dosage: 0.5G Q8H
     Route: 041
     Dates: start: 20210810, end: 20210816

REACTIONS (2)
  - Pyrexia [Unknown]
  - Epilepsy [Recovering/Resolving]

NARRATIVE: CASE EVENT DATE: 202108
